FAERS Safety Report 18145915 (Version 2)
Quarter: 2022Q1

REPORT INFORMATION
  Report Type: Spontaneous
  Country: DE (occurrence: DE)
  Receive Date: 20200813
  Receipt Date: 20220110
  Transmission Date: 20220423
  Serious: Yes (Hospitalization, Other)
  Sender: FDA-Public Use
  Company Number: DE-002147023-NVSC2020DE045563

PATIENT
  Sex: Male
  Weight: 96 kg

DRUGS (10)
  1. COTRIMOXAZOLE [Suspect]
     Active Substance: SULFAMETHOXAZOLE\TRIMETHOPRIM
  2. HYDROCHLOROTHIAZIDE\VALSARTAN [Suspect]
     Active Substance: HYDROCHLOROTHIAZIDE\VALSARTAN
     Indication: Hypertension
     Dosage: HYDROCHLOROTHIAZIDE 160, VALSARTAN 12.5
     Dates: start: 2015, end: 2015
  3. HYDROCHLOROTHIAZIDE\VALSARTAN [Suspect]
     Active Substance: HYDROCHLOROTHIAZIDE\VALSARTAN
     Indication: Hypertension
     Dosage: 1 DF, 1X/DAY (MORNING)
     Dates: start: 201401, end: 2014
  4. HYDROCHLOROTHIAZIDE\VALSARTAN [Suspect]
     Active Substance: HYDROCHLOROTHIAZIDE\VALSARTAN
     Dosage: 1 DF, 1X/DAY (MORNING)
     Dates: end: 201606
  5. CISPLATIN [Suspect]
     Active Substance: CISPLATIN
     Indication: Disease recurrence
  6. DIOVAN [Suspect]
     Active Substance: VALSARTAN
     Dosage: UNK
  7. PANTOZOL [Concomitant]
     Active Substance: PANTOPRAZOLE SODIUM
     Dosage: 40 MG, 1X/DAY
  8. ACYCLOVIR [Concomitant]
     Active Substance: ACYCLOVIR
     Dosage: 2 DF, 1X/DAY
  9. ACYCLOVIR [Concomitant]
     Active Substance: ACYCLOVIR
     Dosage: 2 DF, 1X/DAY
  10. ENOXAPARIN SODIUM [Concomitant]
     Active Substance: ENOXAPARIN SODIUM
     Dosage: 0.4 ML
     Route: 058

REACTIONS (25)
  - Non-Hodgkin^s lymphoma [Unknown]
  - Ascites [Unknown]
  - Mass [Unknown]
  - Night sweats [Unknown]
  - Disease recurrence [Unknown]
  - Cardiac failure [Not Recovered/Not Resolved]
  - Dyspnoea [Unknown]
  - Ventricular dysfunction [Unknown]
  - Nocturia [Unknown]
  - Immunodeficiency [Not Recovered/Not Resolved]
  - Mitral valve incompetence [Unknown]
  - Basal cell carcinoma [Unknown]
  - Polyneuropathy [Not Recovered/Not Resolved]
  - Acute kidney injury [Unknown]
  - Oedema peripheral [Unknown]
  - Hypogonadism [Not Recovered/Not Resolved]
  - Cough [Unknown]
  - Productive cough [Unknown]
  - Bronchitis [Unknown]
  - Fatigue [Not Recovered/Not Resolved]
  - Nasopharyngitis [Unknown]
  - Skin disorder [Unknown]
  - Anaemia [Not Recovered/Not Resolved]
  - Benign prostatic hyperplasia [Unknown]
  - Exercise tolerance decreased [Not Recovered/Not Resolved]

NARRATIVE: CASE EVENT DATE: 20141101
